FAERS Safety Report 7789056-6 (Version None)
Quarter: 2011Q3

REPORT INFORMATION
  Report Type: 
  Country: None (occurrence: None)
  Receive Date: 20110930
  Receipt Date: 20110923
  Transmission Date: 20111222
  Serious: Yes (Hospitalization)
  Sender: FDA-Public Use
  Company Number: US-PFIZER INC-2011177624

PATIENT
  Sex: Female
  Weight: 44.898 kg

DRUGS (4)
  1. SUTENT [Suspect]
     Indication: BREAST CANCER METASTATIC
     Dosage: 25 MG, 2X/DAY (BID)
     Route: 048
     Dates: start: 20110729, end: 20110808
  2. SUTENT [Suspect]
     Indication: ADENOID CYSTIC CARCINOMA
     Dosage: 25 MG, 2X/DAY
     Route: 048
     Dates: start: 20110830
  3. OXYMORPHONE [Concomitant]
     Indication: PAIN
     Dosage: UNK
  4. FENTANYL [Concomitant]
     Dosage: UNK
     Route: 058

REACTIONS (2)
  - INTESTINAL OBSTRUCTION [None]
  - GASTRIC DISORDER [None]
